FAERS Safety Report 8990912 (Version 1)
Quarter: 2012Q4

REPORT INFORMATION
  Report Type: Spontaneous
  Country: GB (occurrence: None)
  Receive Date: 20121220
  Receipt Date: 20121220
  Transmission Date: 20130627
  Serious: Yes (Other)
  Sender: FDA-Public Use
  Company Number: CL-458-2012

PATIENT
  Age: 75 Year
  Sex: Male

DRUGS (16)
  1. FLUCONAZOLE [Suspect]
     Indication: ANTIFUNGAL PROPHYLAXIS
  2. CIPROFLOXACIN [Suspect]
     Indication: ANTIFUNGAL PROPHYLAXIS
     Dosage: OD
  3. HYDROCHLOROTHIAZIDE [Concomitant]
  4. POTASSIUM [Concomitant]
  5. PRAZOSIN [Concomitant]
  6. SIMVASTATIN [Concomitant]
  7. VITAMIN D [Concomitant]
  8. AMLODIPINE [Concomitant]
  9. ASPIRIN [Concomitant]
  10. ATENOLOL [Concomitant]
  11. DEXAMETHASONE [Concomitant]
  12. FERROUS SULFATE [Concomitant]
  13. FOLIC ACID [Concomitant]
  14. AMIODARONE HCL [Suspect]
  15. BORTEZOMIB [Suspect]
     Dosage: cyclic
  16. OMEPRAZOLE [Suspect]
     Dosage: OD

REACTIONS (6)
  - Autonomic neuropathy [None]
  - Neuropathy peripheral [None]
  - Orthostatic hypotension [None]
  - Syncope [None]
  - Drug interaction [None]
  - Drug level increased [None]
